FAERS Safety Report 16935637 (Version 2)
Quarter: 2019Q4

REPORT INFORMATION
  Report Type: Spontaneous
  Country: US (occurrence: US)
  Receive Date: 20191018
  Receipt Date: 20191021
  Transmission Date: 20200122
  Serious: Yes (Other)
  Sender: FDA-Public Use
  Company Number: US-SA-2019SA288069

PATIENT
  Age: 75 Year
  Sex: Female

DRUGS (2)
  1. ALLEGRA ALLERGY [Suspect]
     Active Substance: FEXOFENADINE HYDROCHLORIDE
     Indication: URTICARIA
     Dosage: UNK UNK, UNK
     Route: 065
  2. ALLEGRA ALLERGY [Suspect]
     Active Substance: FEXOFENADINE HYDROCHLORIDE
     Indication: HYPERSENSITIVITY

REACTIONS (7)
  - Glaucoma [Unknown]
  - Eye disorder [Unknown]
  - Gout [Recovering/Resolving]
  - Sinus headache [Unknown]
  - Head discomfort [Unknown]
  - Drug ineffective [Unknown]
  - Eye swelling [Unknown]
